FAERS Safety Report 4494372-X (Version None)
Quarter: 2004Q4

REPORT INFORMATION
  Report Type: 
  Country: None (occurrence: None)
  Receive Date: 20041104
  Receipt Date: 20041104
  Transmission Date: 20050328
  Serious: Yes (Other)
  Sender: FDA-Public Use
  Company Number: None

PATIENT
  Age: 63 Year
  Sex: Female

DRUGS (3)
  1. ADALIMUBAB / ABBOTT [Suspect]
     Indication: RHEUMATOID ARTHRITIS
     Dosage: 40 MG SQ EOW
     Route: 058
     Dates: start: 20031118, end: 20040817
  2. CALCIUM [Concomitant]
  3. VIT D [Concomitant]

REACTIONS (2)
  - BRONCHOPULMONARY ASPERGILLOSIS [None]
  - LUNG NEOPLASM [None]
